FAERS Safety Report 12784509 (Version 3)
Quarter: 2016Q4

REPORT INFORMATION
  Report Type: Report from Study
  Country: CA (occurrence: CA)
  Receive Date: 20160927
  Receipt Date: 20161128
  Transmission Date: 20170207
  Serious: Yes (Other)
  Sender: FDA-Public Use
  Company Number: CA-JNJFOC-20160920300

PATIENT
  Age: 51 Year
  Sex: Female
  Weight: 86 kg

DRUGS (1)
  1. REMICADE [Suspect]
     Active Substance: INFLIXIMAB
     Indication: COLITIS ULCERATIVE
     Route: 042
     Dates: start: 20110307

REACTIONS (3)
  - Off label use [Unknown]
  - Lymphoma [Unknown]
  - Product use issue [Unknown]

NARRATIVE: CASE EVENT DATE: 20160919
